FAERS Safety Report 6290383-2 (Version None)
Quarter: 2009Q3

REPORT INFORMATION
  Report Type: 
  Country: None (occurrence: None)
  Receive Date: 20090730
  Receipt Date: 20090319
  Transmission Date: 20100115
  Serious: No
  Sender: FDA-Public Use
  Company Number: US-BRISTOL-MYERS SQUIBB COMPANY-14552962

PATIENT
  Age: 64 Year
  Sex: Female

DRUGS (3)
  1. COUMADIN [Suspect]
  2. LOVENOX [Suspect]
     Indication: PROPHYLAXIS
     Dosage: ENOXAPARIN SOLUTION FOR INJ.
     Dates: start: 20090227
  3. ASPIRIN [Suspect]

REACTIONS (4)
  - INJECTION SITE EXFOLIATION [None]
  - INJECTION SITE HAEMATOMA [None]
  - INJECTION SITE HAEMORRHAGE [None]
  - SKIN IRRITATION [None]
